FAERS Safety Report 5420305-5 (Version None)
Quarter: 2007Q3

REPORT INFORMATION
  Report Type: 
  Country: None (occurrence: None)
  Receive Date: 20070820
  Receipt Date: 20070809
  Transmission Date: 20080115
  Serious: Yes (Other)
  Sender: FDA-Public Use
  Company Number: PL-MERCK-0708POL00010

PATIENT

DRUGS (3)
  1. ZOCOR [Suspect]
     Route: 048
  2. ASPIRIN [Concomitant]
     Route: 065
  3. [THERAPY UNSPECIFIED] [Concomitant]
     Route: 048

REACTIONS (1)
  - CORONARY ARTERY STENOSIS [None]
